FAERS Safety Report 7770662-X (Version None)
Quarter: 2011Q3

REPORT INFORMATION
  Report Type: 
  Country: None (occurrence: None)
  Receive Date: 20110922
  Receipt Date: 20110920
  Transmission Date: 20111222
  Serious: Yes (Life-Threatening, Other)
  Sender: FDA-Public Use
  Company Number: PHHY2011JP55438

PATIENT
  Sex: Male

DRUGS (7)
  1. PROGRAF [Concomitant]
     Indication: RENAL TRANSPLANT
     Dosage: UNK UKN, UNK
     Route: 048
     Dates: start: 20070801, end: 20070816
  2. MEDROL [Concomitant]
     Indication: RENAL TRANSPLANT
     Dosage: UNK UKN, UNK
     Route: 048
     Dates: start: 20070807, end: 20070816
  3. SIMULECT [Suspect]
     Dosage: 20 MG
     Route: 042
     Dates: start: 20070811
  4. PREDNISOLONE [Concomitant]
     Indication: RENAL TRANSPLANT
     Dosage: UNK UKN, UNK
     Route: 042
     Dates: start: 20070807, end: 20070809
  5. SOLU-MEDROL [Concomitant]
     Indication: RENAL TRANSPLANT
     Dosage: 500 MG
     Dates: start: 20070817
  6. SIMULECT [Suspect]
     Indication: RENAL TRANSPLANT
     Dosage: 20 MG
     Route: 042
     Dates: start: 20070807
  7. PROGRAF [Concomitant]
     Dosage: UNK
     Route: 042
     Dates: start: 20070807, end: 20070809

REACTIONS (4)
  - RENAL IMPAIRMENT [None]
  - URINE OUTPUT DECREASED [None]
  - OLIGURIA [None]
  - SMALL INTESTINAL PERFORATION [None]
